FAERS Safety Report 5598703-9 (Version None)
Quarter: 2008Q1

REPORT INFORMATION
  Report Type: 
  Country: None (occurrence: None)
  Receive Date: 20080122
  Receipt Date: 20080109
  Transmission Date: 20080703
  Serious: Yes (Hospitalization, Other)
  Sender: FDA-Public Use
  Company Number: US-ELI_LILLY_AND_COMPANY-US200801001885

PATIENT
  Sex: Female

DRUGS (3)
  1. CYMBALTA [Suspect]
     Indication: BIPOLAR DISORDER
     Dosage: 60 MG, UNK
     Dates: start: 20070101
  2. CYMBALTA [Interacting]
     Dosage: 90 MG, UNK
  3. CYMBALTA [Interacting]
     Dosage: 120 MG, UNK

REACTIONS (2)
  - DRUG INTERACTION [None]
  - WOUND INFECTION STAPHYLOCOCCAL [None]
